FAERS Safety Report 4356103-3 (Version None)
Quarter: 2004Q2

REPORT INFORMATION
  Report Type: 
  Country: None (occurrence: None)
  Receive Date: 20040511
  Receipt Date: 20040402
  Transmission Date: 20050107
  Serious: Yes (Death, Hospitalization)
  Sender: FDA-Public Use
  Company Number: FR-GLAXOSMITHKLINE-B0328901A

PATIENT
  Age: 83 Year
  Sex: Male

DRUGS (3)
  1. DEROXAT [Suspect]
     Dosage: 20MG PER DAY
     Route: 048
     Dates: start: 20040315, end: 20040322
  2. PREVISCAN [Suspect]
     Dosage: 20MG PER DAY
     Route: 048
     Dates: end: 20040322
  3. ZOLPIDEM TARTRATE [Concomitant]
     Indication: INSOMNIA
     Dates: start: 20040301, end: 20040301

REACTIONS (4)
  - CARDIAC ARREST [None]
  - HALLUCINATION [None]
  - HEPATITIS FULMINANT [None]
  - RESPIRATORY DISTRESS [None]
